FAERS Safety Report 16004239 (Version 2)
Quarter: 2020Q4

REPORT INFORMATION
  Report Type: Spontaneous
  Country: US (occurrence: US)
  Receive Date: 20190226
  Receipt Date: 20201015
  Transmission Date: 20210113
  Serious: Yes (Other)
  Sender: FDA-Public Use
  Company Number: US-SHIRE-US201906137

PATIENT
  Sex: Male

DRUGS (1)
  1. ELAPRASE [Suspect]
     Active Substance: IDURSULFASE
     Indication: MUCOPOLYSACCHARIDOSIS II
     Dosage: 1 VIAL UNK
     Route: 042
     Dates: start: 20180103

REACTIONS (4)
  - Ear infection [Recovering/Resolving]
  - Urinary glycosaminoglycans increased [Unknown]
  - Abnormal behaviour [Not Recovered/Not Resolved]
  - Pyrexia [Recovering/Resolving]
